FAERS Safety Report 7394809-2 (Version None)
Quarter: 2011Q2

REPORT INFORMATION
  Report Type: 
  Country: None (occurrence: None)
  Receive Date: 20110405
  Receipt Date: 20110329
  Transmission Date: 20111010
  Serious: Yes (Hospitalization)
  Sender: FDA-Public Use
  Company Number: A0773212A

PATIENT
  Age: 48 Year
  Sex: Female
  Weight: 122.3 kg

DRUGS (11)
  1. MULTI-VITAMIN [Concomitant]
  2. DICLOFENAC SODIUM [Concomitant]
  3. GLUCOPHAGE [Concomitant]
  4. PLAVIX [Concomitant]
  5. AVANDIA [Suspect]
     Indication: DIABETES MELLITUS
     Dosage: 8MG PER DAY
     Route: 048
     Dates: start: 19990719, end: 20070401
  6. HYDROCODONE [Concomitant]
  7. PREVACID [Concomitant]
  8. DIOVAN [Concomitant]
  9. LISINOPRIL [Concomitant]
  10. CHANTIX [Concomitant]
  11. ZOCOR [Concomitant]

REACTIONS (2)
  - MYOCARDIAL INFARCTION [None]
  - CORONARY ARTERY DISEASE [None]
